FAERS Safety Report 11884547 (Version 1)
Quarter: 2016Q1

REPORT INFORMATION
  Report Type: Spontaneous
  Country: US (occurrence: US)
  Receive Date: 20160104
  Receipt Date: 20160104
  Transmission Date: 20160526
  Serious: Yes (Other)
  Sender: FDA-Public Use
  Company Number: US-BEH-2015057249

PATIENT
  Sex: Female
  Weight: 64 kg

DRUGS (12)
  1. HIZENTRA [Suspect]
     Active Substance: HUMAN IMMUNOGLOBULIN G
     Indication: IMMUNODEFICIENCY COMMON VARIABLE
     Dosage: 4 GM 20 ML VIALS
     Route: 058
  2. EPIPEN [Concomitant]
     Active Substance: EPINEPHRINE
  3. CLONAZEPAM. [Concomitant]
     Active Substance: CLONAZEPAM
  4. SERTRALINE [Concomitant]
     Active Substance: SERTRALINE HYDROCHLORIDE
  5. DIPHENHYDRAMINE. [Concomitant]
     Active Substance: DIPHENHYDRAMINE
  6. RAMIPRIL. [Concomitant]
     Active Substance: RAMIPRIL
  7. LANSOPRAZOLE. [Concomitant]
     Active Substance: LANSOPRAZOLE
  8. VITAMIN D [Concomitant]
     Active Substance: CHOLECALCIFEROL
  9. ZETIA [Concomitant]
     Active Substance: EZETIMIBE
  10. ALEVE [Concomitant]
     Active Substance: NAPROXEN SODIUM
  11. LIDOCAINE/PRILOCAINE [Concomitant]
  12. ASPIRIN. [Concomitant]
     Active Substance: ASPIRIN

REACTIONS (3)
  - Fall [Unknown]
  - Spinal fracture [Unknown]
  - Drug dose omission [Unknown]
